FAERS Safety Report 5448553-9 (Version None)
Quarter: 2007Q3

REPORT INFORMATION
  Report Type: 
  Country: None (occurrence: None)
  Receive Date: 20070911
  Receipt Date: 20070904
  Transmission Date: 20080115
  Serious: Yes (Other)
  Sender: FDA-Public Use
  Company Number: US-ELI_LILLY_AND_COMPANY-US200709000526

PATIENT
  Sex: Female

DRUGS (5)
  1. FORTEO [Suspect]
     Indication: OSTEOPOROSIS
     Dates: start: 20070711
  2. PLENDIL [Concomitant]
     Indication: BLOOD PRESSURE
  3. SYNTHROID [Concomitant]
  4. MAXZIDE [Concomitant]
  5. ZOCOR [Concomitant]

REACTIONS (1)
  - LYMPHOMA [None]
